FAERS Safety Report 4830516-5 (Version None)
Quarter: 2005Q4

REPORT INFORMATION
  Report Type: 
  Country: None (occurrence: None)
  Receive Date: 20051115
  Receipt Date: 20051111
  Transmission Date: 20060501
  Serious: Yes (Other)
  Sender: FDA-Public Use
  Company Number: TCI2005A04374

PATIENT
  Age: 77 Year
  Sex: Male

DRUGS (4)
  1. LEUPROLIDE ACETATE [Suspect]
     Indication: PROSTATE CANCER STAGE IV
     Dosage: 3.75 MG SUBCUTANEOUS
     Route: 058
     Dates: start: 20050922, end: 20050922
  2. CASODEX [Suspect]
     Dosage: 80 MG (80 MG, 1 IN 1 D) PER ORAL
     Route: 048
     Dates: start: 20050908
  3. CORTRIL (HYDROCORTISONE) (TABLETS) [Concomitant]
  4. LEVOTHYROXINE SODIUM [Concomitant]

REACTIONS (4)
  - BLOOD TESTOSTERONE INCREASED [None]
  - CONDITION AGGRAVATED [None]
  - NERVE COMPRESSION [None]
  - PITUITARY TUMOUR BENIGN [None]
